FAERS Safety Report 7721314-3 (Version None)
Quarter: 2011Q3

REPORT INFORMATION
  Report Type: 
  Country: None (occurrence: None)
  Receive Date: 20110831
  Receipt Date: 20110824
  Transmission Date: 20111222
  Serious: Yes (Other)
  Sender: FDA-Public Use
  Company Number: US-BAYER-200716900NA

PATIENT
  Age: 20 Year
  Sex: Female
  Weight: 70 kg

DRUGS (1)
  1. MIRENA [Suspect]
     Indication: CONTRACEPTION
     Dosage: 20 ?G (DAILY DOSE), , INTRA-UTERINE
     Route: 015
     Dates: start: 20051101, end: 20080128

REACTIONS (13)
  - PROCEDURAL PAIN [None]
  - DYSPAREUNIA [None]
  - ABDOMINAL PAIN [None]
  - PELVIC PAIN [None]
  - DISCOMFORT [None]
  - PELVIC ADHESIONS [None]
  - DYSMENORRHOEA [None]
  - ENDOMETRIOSIS [None]
  - UTERINE PERFORATION [None]
  - INFERTILITY FEMALE [None]
  - POST PROCEDURAL HAEMORRHAGE [None]
  - DEVICE DISLOCATION [None]
  - PREMATURE MENOPAUSE [None]
